FAERS Safety Report 4733825-3 (Version None)
Quarter: 2005Q3

REPORT INFORMATION
  Report Type: 
  Country: None (occurrence: None)
  Receive Date: 20050729
  Receipt Date: 20050629
  Transmission Date: 20060218
  Serious: No
  Sender: FDA-Public Use
  Company Number: MK200506-0386-1

PATIENT
  Age: 40 Year
  Sex: Female

DRUGS (1)
  1. NEUTROSPEC [Suspect]
     Indication: PYREXIA
     Dosage: 21.7 MCI, ONE TIME, IV
     Route: 042
     Dates: start: 20050628, end: 20050628

REACTIONS (1)
  - DYSPNOEA [None]
